FAERS Safety Report 7315452-7 (Version None)
Quarter: 2011Q1

REPORT INFORMATION
  Report Type: 
  Country: None (occurrence: None)
  Receive Date: 20110225
  Receipt Date: 20110215
  Transmission Date: 20110831
  Serious: Yes (Death)
  Sender: FDA-Public Use
  Company Number: NL-ELI_LILLY_AND_COMPANY-NL201102004350

PATIENT
  Sex: Female

DRUGS (9)
  1. DICLOFENAC [Concomitant]
     Dosage: 50 MG, UNK
  2. OMEPRAZOLE [Concomitant]
     Dosage: 20 MG, UNK
  3. MACROGOL [Concomitant]
  4. FORTEO [Suspect]
     Indication: OSTEOPOROSIS
     Dosage: 20 UG, DAILY (1/D)
     Route: 058
     Dates: start: 20110120, end: 20110201
  5. PARACETAMOL [Concomitant]
     Dosage: 500 MG, UNK
  6. SENNA [Concomitant]
     Dosage: 80/1MG/ML, UNK
  7. COLECALCIFEROL [Concomitant]
     Dosage: 1.25 G/400IE, UNK
  8. RAMIPRIL [Concomitant]
     Dosage: 2.5 MG, UNK
  9. OXYCODON [Concomitant]
     Dosage: 5 MG, UNK

REACTIONS (1)
  - DEATH [None]
